FAERS Safety Report 20148412 (Version 1)
Quarter: 2021Q4

REPORT INFORMATION
  Report Type: Spontaneous
  Country: US (occurrence: US)
  Receive Date: 20211204
  Receipt Date: 20211204
  Transmission Date: 20220303
  Serious: Yes (Hospitalization, Other)
  Sender: FDA-Public Use
  Company Number: US-AUROBINDO-AUR-APL-2021-049270

PATIENT
  Age: 84 Year
  Sex: Female

DRUGS (1)
  1. POLYETHYLENE GLYCOL [Suspect]
     Active Substance: POLYETHYLENE GLYCOL
     Indication: Constipation
     Dosage: UNK
     Route: 065

REACTIONS (6)
  - Hyperosmolar state [Unknown]
  - Pseudohyponatraemia [Recovering/Resolving]
  - Thirst [Unknown]
  - Blood creatinine increased [Recovered/Resolved]
  - Mucosal dryness [Unknown]
  - Hyponatraemia [Recovered/Resolved]
